FAERS Safety Report 23908121 (Version 1)
Quarter: 2024Q2

REPORT INFORMATION
  Report Type: Spontaneous
  Country: FR (occurrence: FR)
  Receive Date: 20240528
  Receipt Date: 20240528
  Transmission Date: 20240716
  Serious: Yes (Hospitalization, Other)
  Sender: FDA-Public Use
  Company Number: None

PATIENT
  Age: 68 Year
  Sex: Female
  Weight: 108 kg

DRUGS (3)
  1. ENOXAPARIN SODIUM [Suspect]
     Active Substance: ENOXAPARIN SODIUM
     Indication: Portal vein thrombosis
     Dosage: 25000 IU, QD
     Route: 058
     Dates: start: 20240413, end: 20240415
  2. ENOXAPARIN SODIUM [Suspect]
     Active Substance: ENOXAPARIN SODIUM
     Dosage: 8000 IU, QD
     Route: 058
     Dates: start: 20240402, end: 20240412
  3. INNOHEP [Suspect]
     Active Substance: TINZAPARIN SODIUM
     Indication: Portal vein thrombosis
     Dosage: 18000 IU, QD
     Route: 058
     Dates: start: 20240328, end: 20240401

REACTIONS (2)
  - Haemothorax [Recovering/Resolving]
  - Haematoma muscle [Not Recovered/Not Resolved]

NARRATIVE: CASE EVENT DATE: 20240401
